FAERS Safety Report 4575616-2 (Version None)
Quarter: 2005Q1

REPORT INFORMATION
  Report Type: 
  Country: None (occurrence: None)
  Receive Date: 20050209
  Receipt Date: 20041101
  Transmission Date: 20050727
  Serious: Yes (Death)
  Sender: FDA-Public Use
  Company Number: US-GLAXOSMITHKLINE-B0349816A

PATIENT
  Age: 52 Year
  Sex: Male

DRUGS (4)
  1. BUPROPION HCL [Suspect]
     Route: 048
  2. ASPIRIN [Suspect]
     Route: 048
  3. ACETAMINOPHEN [Suspect]
     Route: 048
  4. ETHANOL [Suspect]
     Route: 048

REACTIONS (5)
  - CARDIAC ARREST [None]
  - COMPLETED SUICIDE [None]
  - CONVULSION [None]
  - HAEMATEMESIS [None]
  - OVERDOSE [None]
